FAERS Safety Report 12036840 (Version 1)
Quarter: 2016Q1

REPORT INFORMATION
  Report Type: Spontaneous
  Country: US (occurrence: US)
  Receive Date: 20160208
  Receipt Date: 20160208
  Transmission Date: 20160526
  Serious: Yes (Hospitalization, Other)
  Sender: FDA-Public Use
  Company Number: US-GLENMARK GENERICS (EUROPE) LTD.-2015GMK020801

PATIENT
  Age: 1 Day
  Sex: Female
  Weight: 2.25 kg

DRUGS (9)
  1. GABAPENTIN. [Suspect]
     Active Substance: GABAPENTIN
     Indication: PRODUCT USED FOR UNKNOWN INDICATION
     Dosage: 600 MG, THREE TIMES DAILY
     Route: 064
  2. GABAPENTIN. [Suspect]
     Active Substance: GABAPENTIN
     Dosage: 2.5 MG, TWICE A DAY, ON DAY OF LIFE 41
     Route: 065
  3. BACLOFEN. [Concomitant]
     Active Substance: BACLOFEN
     Indication: PRODUCT USED FOR UNKNOWN INDICATION
     Dosage: 30 MG, FOUR TIMES A DAY
     Route: 064
  4. GABAPENTIN. [Suspect]
     Active Substance: GABAPENTIN
     Dosage: 5 MG/KG, EVERY 12 HOURS, ON DAY OF LIFE 7
     Route: 065
  5. OXYBUTYNIN [Concomitant]
     Active Substance: OXYBUTYNIN
     Indication: PRODUCT USED FOR UNKNOWN INDICATION
     Dosage: 10 MG, DAILY
     Route: 064
  6. GABAPENTIN. [Suspect]
     Active Substance: GABAPENTIN
     Dosage: 2.5 MG/KG, EVERY 12 HOURS ON DAY OF LIFE 6
     Route: 065
  7. GABAPENTIN. [Suspect]
     Active Substance: GABAPENTIN
     Dosage: 7.5 MG, TWICE A DAY, ON DAY OF LIFE 27
     Route: 065
  8. GABAPENTIN. [Suspect]
     Active Substance: GABAPENTIN
     Dosage: 5 MG, TWICE A DAY, ON DAY OF LIFE 34
  9. GABAPENTIN. [Suspect]
     Active Substance: GABAPENTIN
     Dosage: 5 MG/KG, TWICE A DAY UNTIL DAY OF LIFE 15

REACTIONS (2)
  - Drug withdrawal syndrome neonatal [Recovered/Resolved]
  - Foetal exposure during pregnancy [Unknown]
